FAERS Safety Report 11760613 (Version 2)
Quarter: 2019Q2

REPORT INFORMATION
  Report Type: Spontaneous
  Country: US (occurrence: US)
  Receive Date: 20151120
  Receipt Date: 20190523
  Transmission Date: 20190711
  Serious: Yes (Death, Other)
  Sender: FDA-Public Use
  Company Number: US-PFIZER INC-2015396091

PATIENT
  Age: 61 Year
  Sex: Male

DRUGS (19)
  1. VIAGRA [Suspect]
     Active Substance: SILDENAFIL CITRATE
     Dosage: 100 MG, UNK
     Dates: start: 20020327, end: 20140705
  2. CIALIS [Suspect]
     Active Substance: TADALAFIL
     Dosage: 5 MG, UNK
     Dates: start: 20141013, end: 20141112
  3. VIAGRA [Suspect]
     Active Substance: SILDENAFIL CITRATE
     Indication: ERECTILE DYSFUNCTION
     Dosage: UNK
     Route: 048
     Dates: start: 200310, end: 201410
  4. NOVOLOG [Concomitant]
     Active Substance: INSULIN ASPART
     Dosage: AS DIRECTED, 1X/DAY
  5. MOTRIN IB [Concomitant]
     Active Substance: IBUPROFEN
     Dosage: 1 DF, 2X/DAY
  6. SPIRONOLACTONE. [Concomitant]
     Active Substance: SPIRONOLACTONE
     Dosage: 1 DF, 2X/DAY
  7. VICODIN [Concomitant]
     Active Substance: ACETAMINOPHEN\HYDROCODONE BITARTRATE
     Dosage: 1 DF, EVERY 4 HRS
  8. MINOXIDIL. [Concomitant]
     Active Substance: MINOXIDIL
     Dosage: 1 DF, 2X/DAY
  9. LABETALOL [Concomitant]
     Active Substance: LABETALOL\LABETALOL HYDROCHLORIDE
     Dosage: 1 DF, 2X/DAY
  10. METFORMIN [Concomitant]
     Active Substance: METFORMIN HYDROCHLORIDE
     Dosage: 1 DF, 1X/DAY
  11. METOPROLOL. [Concomitant]
     Active Substance: METOPROLOL
     Dosage: 1 DF, 2X/DAY
  12. ACTOS [Concomitant]
     Active Substance: PIOGLITAZONE HYDROCHLORIDE
     Dosage: 1 DF, 1X/DAY
  13. CHLORTHALIDONE. [Concomitant]
     Active Substance: CHLORTHALIDONE
     Dosage: 0.5 DF, 1X/DAY
  14. BENICAR HCT [Concomitant]
     Active Substance: HYDROCHLOROTHIAZIDE\OLMESARTAN MEDOXOMIL
     Dosage: 1 DF, 1X/DAY
  15. JANUVIA [Concomitant]
     Active Substance: SITAGLIPTIN PHOSPHATE
     Dosage: 1 DF, DAILY
     Route: 048
  16. CIALIS [Suspect]
     Active Substance: TADALAFIL
     Indication: ERECTILE DYSFUNCTION
     Dosage: 5 MG, UNK
     Dates: start: 20120926, end: 20121026
  17. VALIUM [Concomitant]
     Active Substance: DIAZEPAM
     Dosage: 1 DF, 3X/DAY AS NEEDED (PRN)
  18. NORVASC [Concomitant]
     Active Substance: AMLODIPINE BESYLATE
  19. CLONIDINE. [Concomitant]
     Active Substance: CLONIDINE
     Dosage: 1 DF, 2X/DAY

REACTIONS (3)
  - Malignant melanoma stage I [Unknown]
  - Malignant melanoma stage III [Unknown]
  - Death [Fatal]

NARRATIVE: CASE EVENT DATE: 20130610
